FAERS Safety Report 7047806-0 (Version None)
Quarter: 2010Q4

REPORT INFORMATION
  Report Type: 
  Country: None (occurrence: None)
  Receive Date: 20101015
  Receipt Date: 20100902
  Transmission Date: 20110411
  Serious: No
  Sender: FDA-Public Use
  Company Number: US-PFIZER INC-2010108530

PATIENT
  Sex: Male
  Weight: 129 kg

DRUGS (12)
  1. TIKOSYN [Suspect]
     Indication: HEART RATE IRREGULAR
     Dosage: 0.5 MG, 2X/DAY
     Route: 048
  2. TIKOSYN [Suspect]
     Indication: ATRIAL FIBRILLATION
  3. NORVASC [Concomitant]
     Indication: HYPERTENSION
     Dosage: 10 MG DAILY
     Route: 048
  4. WARFARIN [Concomitant]
     Indication: ATRIAL FIBRILLATION
     Dosage: 10 MG DAILY
  5. LANTUS [Concomitant]
     Indication: DIABETES MELLITUS
     Dosage: UNK
  6. LASIX [Concomitant]
     Indication: FLUID RETENTION
     Dosage: 40 MG DAILY
     Route: 048
  7. LIPITOR [Concomitant]
     Indication: BLOOD CHOLESTEROL INCREASED
     Dosage: 20 MG, UNK
     Route: 048
  8. HUMALOG [Concomitant]
     Indication: DIABETES MELLITUS
     Dosage: UNK
  9. SYNTHROID [Concomitant]
     Indication: THYROID DISORDER
     Dosage: 175 UG, UNK
     Route: 048
  10. ATENOLOL [Concomitant]
     Dosage: UNK
  11. KLOR-CON [Concomitant]
     Dosage: 10 MEQ, UNK
  12. VITAMIN B-12 [Concomitant]
     Dosage: UNK

REACTIONS (1)
  - HEART RATE IRREGULAR [None]
